FAERS Safety Report 22144302 (Version 1)
Quarter: 2023Q1

REPORT INFORMATION
  Report Type: Spontaneous
  Country: US (occurrence: US)
  Receive Date: 20230328
  Receipt Date: 20230328
  Transmission Date: 20230417
  Serious: Yes (Hospitalization, Other)
  Sender: FDA-Public Use
  Company Number: US-BRISTOL-MYERS SQUIBB COMPANY-2023-043195

PATIENT
  Age: 67 Year
  Sex: Female

DRUGS (5)
  1. REVLIMID [Suspect]
     Active Substance: LENALIDOMIDE
     Indication: Plasma cell myeloma
     Dosage: DAILY X 14 DAYS
     Route: 048
     Dates: start: 20230207, end: 20230311
  2. ALLOPURINOL [Concomitant]
     Active Substance: ALLOPURINOL
     Indication: Product used for unknown indication
  3. TRAZODONE [Concomitant]
     Active Substance: TRAZODONE HYDROCHLORIDE
     Indication: Product used for unknown indication
  4. ATORVASTATIN [Concomitant]
     Active Substance: ATORVASTATIN
     Indication: Product used for unknown indication
  5. Valsartan/HCTX [Concomitant]
     Indication: Product used for unknown indication
     Dosage: 80 / 12.5 MG

REACTIONS (3)
  - Diarrhoea [Unknown]
  - Failure to thrive [Unknown]
  - Off label use [Unknown]

NARRATIVE: CASE EVENT DATE: 20230311
